FAERS Safety Report 11641334 (Version 2)
Quarter: 2015Q4

REPORT INFORMATION
  Report Type: Report from Study
  Country: US (occurrence: US)
  Receive Date: 20151019
  Receipt Date: 20151030
  Transmission Date: 20160304
  Serious: Yes (Hospitalization)
  Sender: FDA-Public Use
  Company Number: US-JNJFOC-20151009990

PATIENT
  Age: 14 Year
  Sex: Female
  Weight: 77.57 kg

DRUGS (1)
  1. REMICADE [Suspect]
     Active Substance: INFLIXIMAB
     Indication: INFLAMMATORY BOWEL DISEASE
     Route: 042
     Dates: start: 20120515

REACTIONS (1)
  - Peptic ulcer [Recovered/Resolved with Sequelae]

NARRATIVE: CASE EVENT DATE: 20150915
